FAERS Safety Report 5079304-8 (Version None)
Quarter: 2006Q3

REPORT INFORMATION
  Report Type: 
  Country: None (occurrence: None)
  Receive Date: 20060814
  Receipt Date: 20060807
  Transmission Date: 20061208
  Serious: Yes (Hospitalization, Other)
  Sender: FDA-Public Use
  Company Number: GB-JNJFOC-20060801555

PATIENT
  Sex: Male
  Weight: 76 kg

DRUGS (8)
  1. REMICADE [Suspect]
     Indication: RHEUMATOID ARTHRITIS
     Route: 042
  2. METHOTREXATE [Concomitant]
     Route: 065
  3. AMITRIPTYLIN [Concomitant]
     Route: 065
  4. FERROUS GLUCONATE [Concomitant]
     Route: 065
  5. GLIBENCLAMIDE [Concomitant]
     Route: 065
  6. METFORMIN [Concomitant]
     Route: 065
  7. ACETAMINOPHEN [Concomitant]
     Route: 065
  8. RANITIDINE [Concomitant]
     Route: 065

REACTIONS (1)
  - FEMUR FRACTURE [None]
